FAERS Safety Report 25160922 (Version 1)
Quarter: 2025Q2

REPORT INFORMATION
  Report Type: Spontaneous
  Country: US (occurrence: US)
  Receive Date: 20250404
  Receipt Date: 20250404
  Transmission Date: 20250717
  Serious: No
  Sender: AGILE THERAPEUTICS
  Company Number: US-AGILE THERAPEUTICS, INC.-US-AGI-2025-000924

PATIENT
  Sex: Female

DRUGS (2)
  1. TWIRLA [Suspect]
     Active Substance: ETHINYL ESTRADIOL\LEVONORGESTREL
     Indication: Contraception
     Route: 062
     Dates: end: 202412
  2. TWIRLA [Suspect]
     Active Substance: ETHINYL ESTRADIOL\LEVONORGESTREL
     Route: 062
     Dates: start: 202501

REACTIONS (5)
  - Illness [Unknown]
  - Oral candidiasis [Unknown]
  - Dehydration [Recovered/Resolved]
  - Product dose omission issue [Unknown]
  - Product adhesion issue [Unknown]

NARRATIVE: CASE EVENT DATE: 20241201
